FAERS Safety Report 18309055 (Version 1)
Quarter: 2020Q3

REPORT INFORMATION
  Report Type: Spontaneous
  Country: US (occurrence: US)
  Receive Date: 20200925
  Receipt Date: 20200925
  Transmission Date: 20201103
  Serious: No
  Sender: FDA-Public Use
  Company Number: US-AUROBINDO-AUR-APL-2019-065122

PATIENT
  Age: 61 Year
  Sex: Male
  Weight: 119.74 kg

DRUGS (3)
  1. ALENDRONATE SODIUM TABLETS USP 70MG [Suspect]
     Active Substance: ALENDRONATE SODIUM
     Dosage: 1 DOSAGE FORM
     Route: 065
     Dates: start: 20191002
  2. ALENDRONATE SODIUM TABLETS USP 70MG [Suspect]
     Active Substance: ALENDRONATE SODIUM
     Indication: BONE PAIN
     Dosage: 1 DOSAGE FORM, ONCE A WEEK
     Route: 065
     Dates: start: 20190930
  3. ALENDRONATE SODIUM TABLETS USP 70MG [Suspect]
     Active Substance: ALENDRONATE SODIUM
     Indication: MYALGIA
     Dosage: 1 DOSAGE FORM
     Route: 065
     Dates: start: 20191001

REACTIONS (3)
  - Inappropriate schedule of product administration [Unknown]
  - Diarrhoea [Unknown]
  - Dyspepsia [Unknown]
